FAERS Safety Report 22098457 (Version 2)
Quarter: 2023Q1

REPORT INFORMATION
  Report Type: Other
  Country: US (occurrence: US)
  Receive Date: 20230315
  Receipt Date: 20230330
  Transmission Date: 20230418
  Serious: No
  Sender: FDA-Public Use
  Company Number: US-DECIPHERA PHARMACEUTICALS LLC-2023US000159

PATIENT
  Sex: Female

DRUGS (1)
  1. QINLOCK [Suspect]
     Active Substance: RIPRETINIB
     Indication: Neoplasm malignant
     Dosage: 150 MILLIGRAM, QD
     Route: 048
     Dates: start: 20210830

REACTIONS (5)
  - Tooth injury [Unknown]
  - Tooth disorder [Unknown]
  - Gingival disorder [Unknown]
  - Scan abnormal [Unknown]
  - Therapy interrupted [Unknown]

NARRATIVE: CASE EVENT DATE: 20221101
